FAERS Safety Report 9265217 (Version 1)
Quarter: 2013Q2

REPORT INFORMATION
  Report Type: Report from Study
  Country: CA (occurrence: CA)
  Receive Date: 20130501
  Receipt Date: 20130501
  Transmission Date: 20140414
  Serious: Yes (Other)
  Sender: FDA-Public Use
  Company Number: CA-JNJFOC-20130414380

PATIENT
  Sex: Male
  Weight: 66.68 kg

DRUGS (2)
  1. SIMPONI [Suspect]
     Indication: CROHN^S DISEASE
     Route: 058
     Dates: start: 2012
  2. SIMPONI [Suspect]
     Indication: ANKYLOSING SPONDYLITIS
     Route: 058
     Dates: start: 2012

REACTIONS (3)
  - Intestinal operation [Unknown]
  - Incorrect dose administered [Unknown]
  - Off label use [Unknown]
